FAERS Safety Report 16844803 (Version 1)
Quarter: 2019Q4

REPORT INFORMATION
  Report Type: Spontaneous
  Country: US (occurrence: US)
  Receive Date: 20190924
  Receipt Date: 20190924
  Transmission Date: 20200122
  Serious: Yes (Hospitalization)
  Sender: FDA-Public Use
  Company Number: None

PATIENT
  Age: 41 Year
  Sex: Male
  Weight: 103.5 kg

DRUGS (1)
  1. PREGABALIN CAP [Suspect]
     Active Substance: PREGABALIN
     Indication: NEURALGIA
     Route: 048
     Dates: start: 20190820, end: 20190917

REACTIONS (2)
  - Product substitution issue [None]
  - Abdominal pain upper [None]

NARRATIVE: CASE EVENT DATE: 20190903
